FAERS Safety Report 12459866 (Version 1)
Quarter: 2016Q2

REPORT INFORMATION
  Report Type: Spontaneous
  Country: IT (occurrence: IT)
  Receive Date: 20160613
  Receipt Date: 20160613
  Transmission Date: 20160815
  Serious: Yes (Other)
  Sender: FDA-Public Use
  Company Number: IT-MYLANLABS-2016M1023867

PATIENT

DRUGS (13)
  1. CARBAMAZEPINE. [Suspect]
     Active Substance: CARBAMAZEPINE
     Indication: SEIZURE
     Dosage: UNK
  2. PROMETHAZINE [Suspect]
     Active Substance: PROMETHAZINE\PROMETHAZINE HYDROCHLORIDE
     Indication: PSYCHOMOTOR HYPERACTIVITY
     Dosage: UNK
  3. CHOLECALCIFEROL [Suspect]
     Active Substance: CHOLECALCIFEROL
     Indication: VITAMIN D DEFICIENCY
     Dosage: 100000 IU, UNK
  4. DELORAZEPAM [Suspect]
     Active Substance: DELORAZEPAM
     Indication: ALCOHOL WITHDRAWAL SYNDROME
     Dosage: 9 MG, QD
  5. HALOPERIDOL. [Suspect]
     Active Substance: HALOPERIDOL
     Indication: CONFABULATION
  6. POTASSIUM [Suspect]
     Active Substance: POTASSIUM
     Indication: HYPOKALAEMIA
     Dosage: UNK
     Route: 048
  7. DELORAZEPAM [Suspect]
     Active Substance: DELORAZEPAM
     Dosage: 6 MG, QD
  8. CIPROFLOXACIN. [Suspect]
     Active Substance: CIPROFLOXACIN
     Indication: URINARY TRACT INFECTION
     Dosage: UNK
  9. RISPERIDONE. [Suspect]
     Active Substance: RISPERIDONE
     Indication: SENSORY DISTURBANCE
     Dosage: 1 MG, PM
  10. HALOPERIDOL. [Suspect]
     Active Substance: HALOPERIDOL
     Indication: SENSORY DISTURBANCE
     Dosage: 1.5 MG, QD
  11. LEVETIRACETAM. [Suspect]
     Active Substance: LEVETIRACETAM
     Indication: SEIZURE
     Dosage: UNK
  12. RISPERIDONE. [Suspect]
     Active Substance: RISPERIDONE
     Indication: CONFABULATION
  13. THIAMINE. [Suspect]
     Active Substance: THIAMINE
     Indication: VITAMIN SUPPLEMENTATION
     Dosage: 100 MG, QD

REACTIONS (3)
  - Condition aggravated [Unknown]
  - Behavioural and psychiatric symptoms of dementia [Unknown]
  - Drug ineffective [Unknown]
